FAERS Safety Report 16212757 (Version 1)
Quarter: 2019Q2

REPORT INFORMATION
  Report Type: Spontaneous
  Country: US (occurrence: US)
  Receive Date: 20190418
  Receipt Date: 20190418
  Transmission Date: 20190711
  Serious: No
  Sender: FDA-Public Use
  Company Number: US-ASTELLAS-2018US033099

PATIENT
  Age: 63 Year
  Sex: Male

DRUGS (1)
  1. LEXISCAN [Suspect]
     Active Substance: REGADENOSON
     Indication: PRODUCT USED FOR UNKNOWN INDICATION
     Dosage: 0.08 MG/ML, ONCE
     Route: 065
     Dates: start: 20180719, end: 20180719

REACTIONS (2)
  - Dyspnoea [Recovered/Resolved]
  - Intercepted wrong patient selected [Unknown]

NARRATIVE: CASE EVENT DATE: 20180719
